FAERS Safety Report 4802735-5 (Version None)
Quarter: 2005Q4

REPORT INFORMATION
  Report Type: 
  Country: None (occurrence: None)
  Receive Date: 20051019
  Receipt Date: 20051013
  Transmission Date: 20060501
  Serious: Yes (Hospitalization)
  Sender: FDA-Public Use
  Company Number: FR-RB-2136-2005

PATIENT
  Age: 24 Year
  Sex: Male

DRUGS (1)
  1. BUPRENORPHINE HCL [Suspect]
     Dosage: 2 TABLETS WITH TAP WATER
     Route: 042

REACTIONS (9)
  - ABDOMINAL PAIN [None]
  - ASCITES [None]
  - CHILLS [None]
  - ENDOCARDITIS [None]
  - INTENTIONAL DRUG MISUSE [None]
  - MALAISE [None]
  - RESPIRATORY DISTRESS [None]
  - THROMBOSIS [None]
  - TRANSAMINASES INCREASED [None]
